FAERS Safety Report 22165378 (Version 2)
Quarter: 2023Q2

REPORT INFORMATION
  Report Type: Spontaneous
  Country: FR (occurrence: FR)
  Receive Date: 20230403
  Receipt Date: 20230419
  Transmission Date: 20230722
  Serious: Yes (Life-Threatening, Hospitalization, Other)
  Sender: FDA-Public Use
  Company Number: FR-AFSSAPS-SE2023000243

PATIENT
  Age: 72 Year
  Sex: Male
  Weight: 85 kg

DRUGS (2)
  1. AMIODARONE [Suspect]
     Active Substance: AMIODARONE
     Indication: Tachycardia
     Dosage: 400 MILLIGRAM, ONCE A DAY
     Route: 048
     Dates: start: 2013, end: 20230302
  2. BISOPROLOL [Suspect]
     Active Substance: BISOPROLOL
     Indication: Arrhythmia
     Dosage: 5 MILLIGRAM, ONCE A DAY
     Route: 048
     Dates: start: 2015, end: 20230302

REACTIONS (1)
  - Interstitial lung disease [Recovering/Resolving]
